FAERS Safety Report 13017341 (Version 3)
Quarter: 2016Q4

REPORT INFORMATION
  Report Type: Spontaneous
  Country: DE (occurrence: DE)
  Receive Date: 20161212
  Receipt Date: 20161216
  Transmission Date: 20170207
  Serious: Yes (Other)
  Sender: FDA-Public Use
  Company Number: DE-PFIZER INC-2016567564

PATIENT
  Age: 64 Year
  Sex: Male
  Weight: 118 kg

DRUGS (13)
  1. AMLODIPINE BESILATE [Suspect]
     Active Substance: AMLODIPINE BESYLATE
     Dosage: UNK
     Route: 065
     Dates: start: 201305, end: 20161120
  2. RAMIPRIL. [Suspect]
     Active Substance: RAMIPRIL
     Dosage: 5 MG, 2X/DAY
     Route: 065
     Dates: start: 2010, end: 20161120
  3. BAYOTENSIN AKUT [Concomitant]
     Active Substance: NITRENDIPINE
     Indication: HYPERTENSION
     Dosage: 2-3X PER YEAR, AS NEEDED
     Dates: start: 2014
  4. METOPROLOL SUCCINATE. [Suspect]
     Active Substance: METOPROLOL SUCCINATE
     Dosage: 47.6 MG, 2X/DAY
     Route: 065
     Dates: start: 2009, end: 201611
  5. ATORVASTATIN STADA [Suspect]
     Active Substance: ATORVASTATIN
     Dosage: 10 MG, UNK
     Route: 065
  6. OPIPRAMOL-NEURAXPHARM [Suspect]
     Active Substance: OPIPRAMOL
     Dosage: 100 MG, UNK
     Route: 065
  7. MAGNESIUM [Concomitant]
     Active Substance: MAGNESIUM
     Dosage: 400 MG, 1X/DAY
  8. PANTOPRAZOLE [Suspect]
     Active Substance: PANTOPRAZOLE SODIUM
     Dosage: 40 MG, 2X/DAY
     Route: 065
     Dates: start: 2009
  9. L-THYROXIN HENNING [Suspect]
     Active Substance: LEVOTHYROXINE SODIUM
     Dosage: 75 UG, 1X/DAY
     Route: 065
     Dates: start: 2009
  10. TAMSULOSIN BASICS [Suspect]
     Active Substance: TAMSULOSIN
     Dosage: 0.4 MG, 1X/DAY
     Route: 065
     Dates: start: 201210
  11. ASPIRIN. [Concomitant]
     Active Substance: ASPIRIN
     Dosage: UNK
  12. NEPRESOL [Suspect]
     Active Substance: DIHYDRALAZINE SULFATE
     Dosage: 25 MG, 2X/DAY
     Route: 065
     Dates: start: 2009
  13. HYDROCHLOROTHIAZID [Suspect]
     Active Substance: HYDROCHLOROTHIAZIDE
     Dosage: 12.5 MG, UNK
     Route: 065
     Dates: end: 20161120

REACTIONS (42)
  - Depressed mood [Recovered/Resolved]
  - Vision blurred [Recovered/Resolved]
  - Hypoaesthesia [Recovered/Resolved]
  - Oedema peripheral [Unknown]
  - Arthralgia [Recovered/Resolved]
  - Dry eye [Recovered/Resolved]
  - Visual impairment [Recovered/Resolved]
  - Dyspnoea [Recovered/Resolved]
  - Micturition urgency [Recovered/Resolved]
  - Magnesium deficiency [Unknown]
  - Abdominal pain [Unknown]
  - Abdominal pain upper [Recovered/Resolved]
  - Muscle spasms [Recovered/Resolved]
  - Nasal dryness [Recovered/Resolved]
  - Nervousness [Recovered/Resolved]
  - Respiratory distress [Recovered/Resolved]
  - Muscular weakness [Unknown]
  - Conjunctivitis [Unknown]
  - Muscle spasms [Recovered/Resolved]
  - Fatigue [Unknown]
  - Gingival bleeding [Recovered/Resolved]
  - Balance disorder [Recovered/Resolved]
  - Sexual dysfunction [Recovered/Resolved]
  - Photophobia [Recovered/Resolved]
  - Headache [Recovered/Resolved]
  - Weight increased [Recovered/Resolved]
  - Diarrhoea [Unknown]
  - Sleep disorder [Recovered/Resolved]
  - Depression [Recovered/Resolved]
  - Oedema [Recovered/Resolved]
  - Chest pain [Recovered/Resolved]
  - Back pain [Unknown]
  - Pruritus [Unknown]
  - Anxiety [Recovered/Resolved]
  - Dry mouth [Recovered/Resolved]
  - Memory impairment [Recovered/Resolved]
  - Nasal congestion [Recovered/Resolved]
  - Asthenia [Recovered/Resolved]
  - Lacrimal disorder [Unknown]
  - Myalgia [Unknown]
  - Dizziness [Recovered/Resolved]
  - Erectile dysfunction [Unknown]

NARRATIVE: CASE EVENT DATE: 2009
